FAERS Safety Report 9027840 (Version 1)
Quarter: 2013Q1

REPORT INFORMATION
  Report Type: Spontaneous
  Country: PL (occurrence: PL)
  Receive Date: 20130124
  Receipt Date: 20130124
  Transmission Date: 20140127
  Serious: Yes (Other)
  Sender: FDA-Public Use
  Company Number: PL-JNJFOC-20130110054

PATIENT
  Age: 35 Year
  Sex: Female

DRUGS (2)
  1. EVRA [Suspect]
     Indication: CONTRACEPTION
     Route: 062
     Dates: start: 20121102, end: 20130103
  2. SUMAMED [Interacting]
     Indication: PRODUCT USED FOR UNKNOWN INDICATION
     Route: 048
     Dates: start: 20121206

REACTIONS (3)
  - Pregnancy with contraceptive patch [Not Recovered/Not Resolved]
  - Exposure during pregnancy [Unknown]
  - Drug interaction [Unknown]
